FAERS Safety Report 11501478 (Version 1)
Quarter: 2015Q3

REPORT INFORMATION
  Report Type: Spontaneous
  Country: CH (occurrence: CH)
  Receive Date: 20150914
  Receipt Date: 20150914
  Transmission Date: 20151125
  Serious: Yes (Hospitalization, Other)
  Sender: FDA-Public Use
  Company Number: CH-GLAXOSMITHKLINE-CH2015127317

PATIENT
  Age: 46 Year
  Sex: Female

DRUGS (6)
  1. CARMUSTINE W/CYTARABINE/ETOPOSIDE/MELPHALAN [Suspect]
     Active Substance: CARMUSTINE\CYTARABINE\ETOPOSIDE\MELPHALAN
     Indication: HODGKIN^S DISEASE STAGE IV
     Route: 041
     Dates: start: 20150331
  2. ESOMEPRAZOL [Suspect]
     Active Substance: ESOMEPRAZOLE
     Route: 048
     Dates: end: 20150825
  3. BACTRIM [Suspect]
     Active Substance: SULFAMETHOXAZOLE\TRIMETHOPRIM
     Route: 048
     Dates: start: 20150402
  4. VALTREX [Suspect]
     Active Substance: VALACYCLOVIR HYDROCHLORIDE
     Dates: start: 20150402
  5. VALCYTE [Suspect]
     Active Substance: VALGANCICLOVIR HYDROCHLORIDE
     Dates: end: 20150808
  6. NOXAFIL [Suspect]
     Active Substance: POSACONAZOLE
     Route: 048
     Dates: start: 20150402

REACTIONS (4)
  - Pseudomonas test positive [None]
  - Pancytopenia [Not Recovered/Not Resolved]
  - Bone marrow toxicity [None]
  - Cytomegalovirus infection [None]

NARRATIVE: CASE EVENT DATE: 20150404
